FAERS Safety Report 10076220 (Version 1)
Quarter: 2014Q2

REPORT INFORMATION
  Report Type: Spontaneous
  Country: US (occurrence: None)
  Receive Date: 20140410
  Receipt Date: 20140410
  Transmission Date: 20141212
  Serious: Yes (Hospitalization)
  Sender: FDA-Public Use
  Company Number: UTC-046707

PATIENT
  Age: 58 Year
  Sex: Female
  Weight: 87.08 kg

DRUGS (2)
  1. TYVASO (0.6 MILLIGRAM/MILLILITERS, AEROSOL FOR INHALATION) (TREPROSTINIL SODIUM) [Suspect]
     Indication: COR PULMONALE CHRONIC
     Route: 055
     Dates: start: 20140130
  2. ADCIRCA (TADALAFIL) [Concomitant]

REACTIONS (3)
  - Dehydration [None]
  - Vomiting [None]
  - Oral pain [None]
